FAERS Safety Report 8890115 (Version 3)
Quarter: 2012Q4

REPORT INFORMATION
  Report Type: 
  Country: US (occurrence: US)
  Receive Date: 20121107
  Receipt Date: 20121127
  Transmission Date: 20130627
  Serious: Yes (Death, Other)
  Sender: FDA-Public Use
  Company Number: US-JNJFOC-20121016350

PATIENT
  Age: 34 Year
  Sex: Male

DRUGS (3)
  1. TAPENTADOL [Suspect]
     Indication: PRODUCT USED FOR UNKNOWN INDICATION
     Route: 042
  2. AN UNKNOWN MEDICATION [Concomitant]
     Indication: PRODUCT USED FOR UNKNOWN INDICATION
     Route: 065
  3. AN UNKNOWN MEDICATION [Concomitant]
     Indication: PRODUCT USED FOR UNKNOWN INDICATION
     Route: 065

REACTIONS (6)
  - Toxicity to various agents [Fatal]
  - Drug abuse [Fatal]
  - Pulmonary oedema [Fatal]
  - Dyspnoea [Unknown]
  - Accidental overdose [Fatal]
  - Incorrect route of drug administration [Unknown]
